FAERS Safety Report 6314860-0 (Version None)
Quarter: 2009Q3

REPORT INFORMATION
  Report Type: 
  Country: None (occurrence: None)
  Receive Date: 20090819
  Receipt Date: 20090806
  Transmission Date: 20100115
  Serious: Yes (Life-Threatening)
  Sender: FDA-Public Use
  Company Number: DE-PFIZER INC-2009230676

PATIENT
  Age: 59 Year

DRUGS (3)
  1. CHAMPIX [Suspect]
     Indication: SMOKING CESSATION THERAPY
     Dosage: 1 DF, 2X/DAY
     Route: 048
     Dates: start: 20090502
  2. LISIHEXAL [Concomitant]
     Indication: HYPERTENSION
     Dosage: UNK
  3. ASTHMA-SPRAY [Concomitant]
     Indication: ASTHMA

REACTIONS (3)
  - DAYDREAMING [None]
  - INAPPROPRIATE AFFECT [None]
  - MANIA [None]
